FAERS Safety Report 24130726 (Version 1)
Quarter: 2024Q3

REPORT INFORMATION
  Report Type: Report from Study
  Country: JP (occurrence: JP)
  Receive Date: 20240724
  Receipt Date: 20240724
  Transmission Date: 20241017
  Serious: Yes (Hospitalization)
  Sender: MERZ
  Company Number: JP-teijin-202401756_XEO_P_1

PATIENT
  Age: 75 Year
  Sex: Male

DRUGS (18)
  1. XEOMIN [Suspect]
     Active Substance: INCOBOTULINUMTOXINA
     Indication: Muscle spasticity
     Dosage: 150 025
     Route: 030
     Dates: start: 20231211, end: 20231211
  2. XEOMIN [Suspect]
     Active Substance: INCOBOTULINUMTOXINA
     Dosage: 100 025
     Route: 030
     Dates: start: 20230313, end: 20230313
  3. XEOMIN [Suspect]
     Active Substance: INCOBOTULINUMTOXINA
     Dosage: 150 025
     Route: 030
     Dates: start: 20230605, end: 20230605
  4. XEOMIN [Suspect]
     Active Substance: INCOBOTULINUMTOXINA
     Dosage: 150 025
     Route: 030
     Dates: start: 20230911, end: 20230911
  5. XEOMIN [Suspect]
     Active Substance: INCOBOTULINUMTOXINA
     Dosage: 150 025
     Route: 030
     Dates: start: 20240422, end: 20240422
  6. AMLODIPINE [Concomitant]
     Active Substance: AMLODIPINE BESYLATE
     Indication: Hypertension
     Dosage: 2.5 MG
     Route: 048
     Dates: end: 20230704
  7. LANSOPRAZOLE [Concomitant]
     Active Substance: LANSOPRAZOLE
     Indication: Prophylaxis
     Dosage: 15 MG
     Route: 048
  8. ROSUVASTATIN [Concomitant]
     Active Substance: ROSUVASTATIN
     Indication: Dyslipidaemia
     Dosage: 2.5 MG
     Route: 048
  9. LEVETIRACETAM [Concomitant]
     Active Substance: LEVETIRACETAM
     Indication: Epilepsy
     Dosage: 1000 MG
     Route: 048
     Dates: end: 20240411
  10. SITAGLIPTIN [Concomitant]
     Active Substance: SITAGLIPTIN
     Indication: Diabetes mellitus
     Dosage: 50 MG
     Route: 048
     Dates: end: 20230829
  11. EDOXABAN TOSYLATE [Concomitant]
     Active Substance: EDOXABAN TOSYLATE
     Indication: Atrial fibrillation
     Dosage: 30 MG
     Route: 048
  12. HERBALS [Concomitant]
     Active Substance: HERBALS
     Indication: Neurosis
     Dosage: 5 G
     Route: 048
  13. VALPROATE SODIUM [Concomitant]
     Active Substance: VALPROATE SODIUM
     Indication: Epilepsy
     Dosage: 400 MG
     Route: 048
  14. MAGNESIUM OXIDE [Concomitant]
     Active Substance: MAGNESIUM OXIDE
     Indication: Constipation
     Dosage: 2000 MG
     Route: 048
  15. FEXOFENADINE HYDROCHLORIDE [Concomitant]
     Active Substance: FEXOFENADINE HYDROCHLORIDE
     Indication: Rhinitis allergic
     Dosage: 60 MG
     Route: 048
     Dates: end: 20240411
  16. PETROLATUM [Concomitant]
     Active Substance: PETROLATUM
     Indication: Xeroderma
     Dosage: 200 G
     Route: 061
     Dates: end: 20230704
  17. PETROLATUM [Concomitant]
     Active Substance: PETROLATUM
     Indication: Pruritus
  18. CARBOCYSTEINE [Concomitant]
     Active Substance: CARBOCYSTEINE
     Indication: Bronchitis chronic
     Dosage: 1500 MG
     Route: 048
     Dates: start: 20230801

REACTIONS (3)
  - Pneumonia aspiration [Recovering/Resolving]
  - Nasopharyngitis [Recovered/Resolved]
  - Immobilisation syndrome [Recovering/Resolving]

NARRATIVE: CASE EVENT DATE: 20240113
